FAERS Safety Report 9559651 (Version 2)
Quarter: 2014Q3

REPORT INFORMATION
  Report Type: Spontaneous
  Country: US (occurrence: None)
  Receive Date: 20130909
  Receipt Date: 20140908
  Transmission Date: 20150326
  Serious: Yes (Hospitalization)
  Sender: FDA-Public Use
  Company Number: 381607

PATIENT
  Age: 49 Year
  Sex: Female
  Weight: 113.4 kg

DRUGS (13)
  1. CYMBALTA [Concomitant]
     Active Substance: DULOXETINE HYDROCHLORIDE
  2. SENNA [Concomitant]
     Active Substance: SENNA LEAF\SENNOSIDES\SENNOSIDES A AND B
  3. PRAVASTATIN [Concomitant]
     Active Substance: PRAVASTATIN\PRAVASTATIN SODIUM
  4. METOPROLOL (METOPROLOL) [Concomitant]
     Active Substance: METOPROLOL
  5. LANSOPRAZOLE (LANSOPRAZOLE) [Concomitant]
     Active Substance: LANSOPRAZOLE
  6. VITAMIN D3 [Concomitant]
     Active Substance: CHOLECALCIFEROL
  7. CALCIUM CARBONATE (CALCIUM CARBONATE) [Concomitant]
  8. LAMOTRIGINE (LAMOTRIGINE) [Concomitant]
     Active Substance: LAMOTRIGINE
  9. METFORMIN [Concomitant]
     Active Substance: METFORMIN HYDROCHLORIDE
  10. LISINOPRIL AND HYDROCHLOROTHIAZIDE) (HYDROCHLOROTHIAZIDE, LISINOPRIL) [Concomitant]
  11. ILOSONE (ERYTHROMYCIN ESTOLATE) [Concomitant]
  12. CYMBALTA [Concomitant]
     Active Substance: DULOXETINE HYDROCHLORIDE
  13. VICTOZA [Suspect]
     Active Substance: LIRAGLUTIDE
     Indication: TYPE 2 DIABETES MELLITUS
     Route: 058
     Dates: start: 20110404, end: 20130624

REACTIONS (1)
  - Pancreatitis [None]

NARRATIVE: CASE EVENT DATE: 20130623
